FAERS Safety Report 12137290 (Version 1)
Quarter: 2016Q1

REPORT INFORMATION
  Report Type: Spontaneous
  Country: FR (occurrence: FR)
  Receive Date: 20160302
  Receipt Date: 20160302
  Transmission Date: 20160526
  Serious: Yes (Other)
  Sender: FDA-Public Use
  Company Number: FR-BD RX INC-2016BDR00012

PATIENT
  Age: 63 Year
  Sex: Female

DRUGS (3)
  1. DEXAMETHASONE SODIUM PHOSPHATE. [Suspect]
     Active Substance: DEXAMETHASONE SODIUM PHOSPHATE
     Indication: PLASMA CELL MYELOMA
     Dosage: 20 MG, ON THE DAY OF AND THE DAY AFTER EACH BORTEZOMIB DOSE
     Route: 048
  2. BORTEZOMIB [Suspect]
     Active Substance: BORTEZOMIB
     Indication: PLASMA CELL MYELOMA
     Dosage: 1.3 MG/M2, DAYS 1, 4, 8, 11 OF EACH 21-D CYCLE; ON DAYS 1, 8, 15, 22 OF EACH 35-D CYCLE
     Route: 058
  3. QUISINOSTAT [Suspect]
     Active Substance: QUISINOSTAT
     Indication: PLASMA CELL MYELOMA
     Dosage: 12 MG, DAYS 1, 3, 5 OF EACH TREATMENT WEEK
     Route: 048

REACTIONS (3)
  - Electrocardiogram T wave inversion [Recovered/Resolved]
  - Ventricular extrasystoles [Recovered/Resolved]
  - Electrocardiogram QT prolonged [Recovered/Resolved]
